FAERS Safety Report 23467243 (Version 3)
Quarter: 2024Q1

REPORT INFORMATION
  Report Type: Spontaneous
  Country: US (occurrence: US)
  Receive Date: 20240201
  Receipt Date: 20240307
  Transmission Date: 20240410
  Serious: No
  Sender: FDA-Public Use
  Company Number: US-PFIZER INC-PV202400014029

PATIENT
  Age: 66 Year
  Sex: Female

DRUGS (1)
  1. INLYTA [Suspect]
     Active Substance: AXITINIB
     Dosage: 5 MG

REACTIONS (8)
  - Headache [Recovered/Resolved]
  - Pain [Recovered/Resolved]
  - Diarrhoea [Unknown]
  - Abdominal discomfort [Unknown]
  - Blood glucose fluctuation [Unknown]
  - Arthralgia [Unknown]
  - Pruritus [Unknown]
  - Myalgia [Unknown]
